FAERS Safety Report 4632539-8 (Version None)
Quarter: 2005Q2

REPORT INFORMATION
  Report Type: 
  Country: None (occurrence: None)
  Receive Date: 20050411
  Receipt Date: 20041014
  Transmission Date: 20051028
  Serious: Yes (Life-Threatening, Hospitalization, Disabling)
  Sender: FDA-Public Use
  Company Number: DE-MERCK-0410DEU00468

PATIENT
  Age: 55 Year
  Sex: Female
  Weight: 70 kg

DRUGS (11)
  1. HEPARIN [Concomitant]
     Route: 051
     Dates: start: 20020715, end: 20020807
  2. GABAPENTIN [Concomitant]
     Indication: NEURALGIA
     Route: 048
     Dates: start: 20020606, end: 20040801
  3. ESOMEPRAZOLE MAGNESIUM [Concomitant]
     Route: 048
     Dates: start: 20010101
  4. VIOXX [Suspect]
     Indication: MUSCULOSKELETAL PAIN
     Route: 048
     Dates: start: 20020715, end: 20020813
  5. VIOXX [Suspect]
     Route: 048
     Dates: start: 20021129, end: 20030601
  6. VIOXX [Suspect]
     Route: 048
     Dates: start: 20011101, end: 20010101
  7. VIOXX [Suspect]
     Route: 048
     Dates: start: 20020101, end: 20020101
  8. VIOXX [Suspect]
     Indication: ROTATOR CUFF SYNDROME
     Route: 048
     Dates: start: 20020715, end: 20020813
  9. VIOXX [Suspect]
     Route: 048
     Dates: start: 20021129, end: 20030601
  10. VIOXX [Suspect]
     Route: 048
     Dates: start: 20011101, end: 20010101
  11. VIOXX [Suspect]
     Route: 048
     Dates: start: 20020101, end: 20020101

REACTIONS (5)
  - CHEST DISCOMFORT [None]
  - CIRCULATORY COLLAPSE [None]
  - EPIGASTRIC DISCOMFORT [None]
  - PULMONARY EMBOLISM [None]
  - THROMBOSIS [None]
